FAERS Safety Report 15455212 (Version 1)
Quarter: 2018Q4

REPORT INFORMATION
  Report Type: Spontaneous
  Country: AU (occurrence: AU)
  Receive Date: 20181002
  Receipt Date: 20181002
  Transmission Date: 20190204
  Serious: Yes (Death, Other)
  Sender: FDA-Public Use
  Company Number: AU-HQ SPECIALTY-AU-2018INT000184

PATIENT
  Age: 55 Year
  Sex: Female

DRUGS (2)
  1. CARBOPLATIN. [Suspect]
     Active Substance: CARBOPLATIN
     Indication: OVARIAN CANCER STAGE III
     Dosage: 385 MG/BODY, THREE WEEKLY CYCLE
  2. PACLITAXEL. [Suspect]
     Active Substance: PACLITAXEL
     Indication: OVARIAN CANCER STAGE III
     Dosage: 100 MG/M2, THREE WEEKLY CYCLE

REACTIONS (4)
  - Pneumatosis [Unknown]
  - Febrile neutropenia [Unknown]
  - Rectal perforation [Fatal]
  - Neutropenic colitis [Unknown]
